FAERS Safety Report 14419699 (Version 1)
Quarter: 2018Q1

REPORT INFORMATION
  Report Type: Spontaneous
  Country: US (occurrence: US)
  Receive Date: 20180122
  Receipt Date: 20180122
  Transmission Date: 20180509
  Serious: No
  Sender: FDA-Public Use
  Company Number: US-PFIZER INC-2018026155

PATIENT
  Age: 12 Year
  Sex: Female

DRUGS (3)
  1. QUILLICHEW ER [Suspect]
     Active Substance: METHYLPHENIDATE HYDROCHLORIDE
     Indication: DYSLEXIA
  2. QUILLICHEW ER [Suspect]
     Active Substance: METHYLPHENIDATE HYDROCHLORIDE
     Indication: AUDITORY DISORDER
     Dosage: UNK
  3. QUILLICHEW ER [Suspect]
     Active Substance: METHYLPHENIDATE HYDROCHLORIDE
     Indication: ABNORMAL BEHAVIOUR

REACTIONS (3)
  - Product taste abnormal [Unknown]
  - Poor quality drug administered [Unknown]
  - Drug ineffective [Unknown]
